FAERS Safety Report 5258762-X (Version None)
Quarter: 2007Q1

REPORT INFORMATION
  Report Type: 
  Country: None (occurrence: None)
  Receive Date: 20070306
  Receipt Date: 20070306
  Transmission Date: 20070707
  Serious: No
  Sender: FDA-Public Use
  Company Number: None

PATIENT
  Sex: Male
  Weight: 104.3273 kg

DRUGS (2)
  1. LEVAQUIN [Suspect]
     Indication: URINARY TRACT INFECTION
     Dosage: 1/500 MG   TWICE A DAY  PO
     Route: 048
     Dates: start: 20030120, end: 20030130
  2. LEVAQUIN [Concomitant]

REACTIONS (1)
  - NEURALGIA [None]
